FAERS Safety Report 19953459 (Version 1)
Quarter: 2021Q4

REPORT INFORMATION
  Report Type: Spontaneous
  Country: US (occurrence: US)
  Receive Date: 20211014
  Receipt Date: 20211014
  Transmission Date: 20220303
  Serious: No
  Sender: FDA-Public Use
  Company Number: None

PATIENT
  Age: 9 Year
  Sex: Male
  Weight: 33.75 kg

DRUGS (1)
  1. SCOPOLAMINE [Suspect]
     Active Substance: SCOPOLAMINE
     Indication: Prophylaxis against motion sickness
     Dosage: ?          QUANTITY:1 PATCH(ES);
     Route: 061
     Dates: start: 20211008, end: 20211010

REACTIONS (5)
  - Dry mouth [None]
  - Increased viscosity of upper respiratory secretion [None]
  - Nausea [None]
  - Vision blurred [None]
  - Mydriasis [None]

NARRATIVE: CASE EVENT DATE: 20211010
